FAERS Safety Report 19959441 (Version 4)
Quarter: 2021Q4

REPORT INFORMATION
  Report Type: Report from Study
  Country: HK (occurrence: HK)
  Receive Date: 20211015
  Receipt Date: 20211208
  Transmission Date: 20220303
  Serious: Yes (Hospitalization)
  Sender: FDA-Public Use
  Company Number: HK-PFIZER INC-202101328856

PATIENT
  Age: 45 Year
  Sex: Male
  Weight: 71.6 kg

DRUGS (3)
  1. AVELUMAB [Suspect]
     Active Substance: AVELUMAB
     Indication: Nasopharyngeal cancer
     Dosage: 760 MG (10MG/KG), CYCLIC: EVERY 2 WEEKS (Q2W)
     Route: 042
     Dates: start: 20210716, end: 20210924
  2. AXITINIB [Suspect]
     Active Substance: AXITINIB
     Indication: Nasopharyngeal cancer
     Dosage: 5 MG, 2X/DAY
     Route: 048
     Dates: start: 20210716, end: 20210804
  3. AXITINIB [Suspect]
     Active Substance: AXITINIB
     Dosage: 3 MG, 2X/DAY
     Route: 048
     Dates: start: 20210805, end: 20211006

REACTIONS (2)
  - Thyroiditis [Recovered/Resolved with Sequelae]
  - Adrenal insufficiency [Recovered/Resolved with Sequelae]

NARRATIVE: CASE EVENT DATE: 20211007
